FAERS Safety Report 10050756 (Version 1)
Quarter: 2014Q2

REPORT INFORMATION
  Report Type: Spontaneous
  Country: US (occurrence: US)
  Receive Date: 20140401
  Receipt Date: 20140401
  Transmission Date: 20141212
  Serious: No
  Sender: FDA-Public Use
  Company Number: US-ASTRAZENECA-2013SE71711

PATIENT
  Age: 68 Year
  Sex: Female
  Weight: 89.8 kg

DRUGS (11)
  1. NEXIUM [Suspect]
     Indication: GASTROOESOPHAGEAL REFLUX DISEASE
     Route: 048
     Dates: start: 2008
  2. PRILOSEC [Suspect]
     Indication: GASTROOESOPHAGEAL REFLUX DISEASE
     Dosage: DAILY
     Route: 048
  3. PRILOSEC OTC [Suspect]
     Indication: GASTROOESOPHAGEAL REFLUX DISEASE
     Dosage: DAILY
     Route: 048
  4. TOPROL  XL [Suspect]
     Indication: HYPERTENSION
     Route: 048
  5. TOPROL  XL [Suspect]
     Indication: HYPERTENSION
     Route: 048
  6. TOPROL  XL [Suspect]
     Indication: HYPERTENSION
     Route: 048
     Dates: start: 2012
  7. LISINOPRIL [Suspect]
     Route: 048
  8. LISINOPRIL [Suspect]
     Route: 048
  9. LISINOPRIL HCTZ [Suspect]
     Indication: HYPERTENSION
     Dosage: 20/25 MG
     Route: 048
  10. SIMVASTATIN [Concomitant]
     Indication: BLOOD CHOLESTEROL INCREASED
     Route: 048
  11. BABY ASPIRIN [Concomitant]
     Route: 048

REACTIONS (14)
  - Dyspepsia [Not Recovered/Not Resolved]
  - Throat irritation [Not Recovered/Not Resolved]
  - Paranasal sinus hypersecretion [Not Recovered/Not Resolved]
  - Gastrooesophageal reflux disease [Not Recovered/Not Resolved]
  - Eructation [Not Recovered/Not Resolved]
  - Renal function test abnormal [Unknown]
  - Blood pressure abnormal [Unknown]
  - Blood creatinine increased [Unknown]
  - Renal failure [Unknown]
  - Asthenia [Unknown]
  - Heart rate decreased [Unknown]
  - Intentional product misuse [Unknown]
  - Drug ineffective [Unknown]
  - Off label use [Unknown]
